FAERS Safety Report 6110284-X (Version None)
Quarter: 2009Q1

REPORT INFORMATION
  Report Type: 
  Country: None (occurrence: None)
  Receive Date: 20090310
  Receipt Date: 20090302
  Transmission Date: 20090719
  Serious: Yes (Hospitalization, Other)
  Sender: FDA-Public Use
  Company Number: BR-ABBOTT-09P-020-0495929-00

PATIENT
  Sex: Female

DRUGS (3)
  1. HUMIRA [Suspect]
     Indication: RHEUMATOID ARTHRITIS
     Route: 058
     Dates: start: 20030401, end: 20081101
  2. UNKNOWN [Concomitant]
     Indication: DIABETES MELLITUS
  3. UNKNOWN [Concomitant]
     Indication: BLOOD CHOLESTEROL INCREASED

REACTIONS (5)
  - ANAEMIA [None]
  - ANOREXIA [None]
  - HYPOPHAGIA [None]
  - PAIN IN EXTREMITY [None]
  - VOMITING [None]
